FAERS Safety Report 9770379 (Version 4)
Quarter: 2014Q2

REPORT INFORMATION
  Report Type: Spontaneous
  Country: US (occurrence: US)
  Receive Date: 20131218
  Receipt Date: 20140619
  Transmission Date: 20141212
  Serious: Yes (Hospitalization)
  Sender: FDA-Public Use
  Company Number: US-009507513-2010SP041118

PATIENT
  Sex: Female
  Weight: 49.9 kg

DRUGS (3)
  1. NUVARING [Suspect]
     Indication: CONTRACEPTION
     Dosage: UNK
     Route: 067
     Dates: start: 20060804, end: 20070224
  2. NUVARING [Suspect]
     Dosage: UNK
     Route: 067
     Dates: start: 20070117
  3. SYNTHROID [Concomitant]

REACTIONS (6)
  - Subclavian vein thrombosis [Recovering/Resolving]
  - Venous thrombosis [Recovering/Resolving]
  - Sinusitis [Unknown]
  - Upper respiratory tract infection [Unknown]
  - Varicose vein [Unknown]
  - Hypotension [Unknown]
